FAERS Safety Report 6935828-7 (Version None)
Quarter: 2010Q3

REPORT INFORMATION
  Report Type: 
  Country: None (occurrence: None)
  Receive Date: 20100823
  Receipt Date: 20100810
  Transmission Date: 20110219
  Serious: Yes (Other)
  Sender: FDA-Public Use
  Company Number: PHHY2010US53645

PATIENT
  Sex: Female

DRUGS (1)
  1. GENTEAL MODERATE LUBRICANT EYE DROPS (NVO) [Suspect]
     Indication: DRY EYE
     Dosage: UNK

REACTIONS (4)
  - CHALAZION [None]
  - ERYTHEMA OF EYELID [None]
  - EYELID OEDEMA [None]
  - HORDEOLUM [None]
